FAERS Safety Report 24058051 (Version 4)
Quarter: 2024Q3

REPORT INFORMATION
  Report Type: Report from Study
  Country: US (occurrence: US)
  Receive Date: 20240707
  Receipt Date: 20240914
  Transmission Date: 20241017
  Serious: Yes (Other)
  Sender: ABBVIE
  Company Number: US-ABBVIE-5788557

PATIENT
  Sex: Female

DRUGS (2)
  1. RINVOQ [Suspect]
     Active Substance: UPADACITINIB
     Indication: Rheumatoid arthritis
     Route: 048
     Dates: start: 20200701
  2. RINVOQ [Suspect]
     Active Substance: UPADACITINIB
     Indication: Rheumatoid arthritis
     Route: 048

REACTIONS (14)
  - Joint arthroplasty [Unknown]
  - Tendon disorder [Unknown]
  - Arthritis [Unknown]
  - Large intestine infection [Unknown]
  - Bone disorder [Unknown]
  - Urinary tract infection [Unknown]
  - Musculoskeletal disorder [Not Recovered/Not Resolved]
  - Burning sensation [Unknown]
  - Neuropathy peripheral [Unknown]
  - Asthma [Unknown]
  - Hypoacusis [Unknown]
  - Arthritis [Unknown]
  - Suture related complication [Unknown]
  - Trismus [Unknown]

NARRATIVE: CASE EVENT DATE: 20230101
